FAERS Safety Report 8309204-9 (Version None)
Quarter: 2012Q2

REPORT INFORMATION
  Report Type: 
  Country: None (occurrence: None)
  Receive Date: 20120424
  Receipt Date: 20120419
  Transmission Date: 20120825
  Serious: Yes (Hospitalization)
  Sender: FDA-Public Use
  Company Number: PHHY2011MX75806

PATIENT
  Age: 56 Year
  Sex: Female

DRUGS (4)
  1. HORMONES NOS [Concomitant]
  2. ACETYLSALICYLIC ACID SRT [Suspect]
     Dosage: 100 MG, DAILY
  3. LOSARTAN [Concomitant]
  4. DILTIAZEM HCL [Concomitant]

REACTIONS (19)
  - ABDOMINAL PAIN [None]
  - RESPIRATORY RATE INCREASED [None]
  - PALLOR [None]
  - DEHYDRATION [None]
  - ASTHENIA [None]
  - DYSPNOEA [None]
  - MALAISE [None]
  - HEPATIC HAEMATOMA [None]
  - NAUSEA [None]
  - ABDOMINAL DISTENSION [None]
  - MYALGIA [None]
  - BLEEDING TIME PROLONGED [None]
  - DIARRHOEA [None]
  - WHITE BLOOD CELL COUNT INCREASED [None]
  - BLOOD TRIGLYCERIDES INCREASED [None]
  - CHILLS [None]
  - OXYGEN SATURATION DECREASED [None]
  - DYSPEPSIA [None]
  - ARTHRALGIA [None]
